FAERS Safety Report 7210932-7 (Version None)
Quarter: 2011Q1

REPORT INFORMATION
  Report Type: 
  Country: None (occurrence: None)
  Receive Date: 20110105
  Receipt Date: 20101217
  Transmission Date: 20110831
  Serious: Yes (Congenital Anomaly)
  Sender: FDA-Public Use
  Company Number: A0680573A

PATIENT
  Sex: Male

DRUGS (2)
  1. PAXIL [Suspect]
     Indication: MAJOR DEPRESSION
     Dosage: 40MG PER DAY
     Dates: start: 19990101, end: 20010913
  2. PRENATAL VITAMINS [Concomitant]

REACTIONS (3)
  - CEREBRAL PALSY [None]
  - CONVULSION [None]
  - DRUG EXPOSURE DURING PREGNANCY [None]
